FAERS Safety Report 20705056 (Version 1)
Quarter: 2022Q2

REPORT INFORMATION
  Report Type: Report from Study
  Country: US (occurrence: US)
  Receive Date: 20220413
  Receipt Date: 20220413
  Transmission Date: 20220720
  Serious: Yes (Other)
  Sender: FDA-Public Use
  Company Number: US-BAYER-2022A051844

PATIENT

DRUGS (2)
  1. ASPIRIN [Interacting]
     Active Substance: ASPIRIN
     Dosage: UNK
  2. CLOPIDOGREL [Interacting]
     Active Substance: CLOPIDOGREL BISULFATE

REACTIONS (2)
  - Subdural haematoma [None]
  - Labelled drug-drug interaction medication error [None]
